FAERS Safety Report 4287297-6 (Version None)
Quarter: 2004Q1

REPORT INFORMATION
  Report Type: 
  Country: None (occurrence: None)
  Receive Date: 20040205
  Receipt Date: 20040126
  Transmission Date: 20041129
  Serious: Yes (Hospitalization)
  Sender: FDA-Public Use
  Company Number: US-SHR-03-018451

PATIENT
  Age: 82 Year
  Sex: Female
  Weight: 60 kg

DRUGS (12)
  1. FLUDARA [Suspect]
     Indication: LYMPHOCYTIC LEUKAEMIA
     Dosage: 25 MG/M2 QD X 5 DAYS, INTRAVENOUS
     Route: 042
     Dates: start: 20031117, end: 20031121
  2. SEPTRA [Concomitant]
  3. NIZORAL [Concomitant]
  4. LEUKERAN [Concomitant]
  5. NEURONTIN [Concomitant]
  6. NORVASC [Concomitant]
  7. LIPITOR [Concomitant]
  8. ATIVAN [Concomitant]
  9. PREVACID [Concomitant]
  10. MVI (VITAMINS NOS) [Concomitant]
  11. FOLIC ACID [Concomitant]
  12. IRON (IRON) [Concomitant]

REACTIONS (1)
  - AUTOIMMUNE THROMBOCYTOPENIA [None]
